FAERS Safety Report 6986283-2 (Version None)
Quarter: 2010Q3

REPORT INFORMATION
  Report Type: 
  Country: None (occurrence: None)
  Receive Date: 20100915
  Receipt Date: 20090610
  Transmission Date: 20110219
  Serious: No
  Sender: FDA-Public Use
  Company Number: US-WYE-H09710309

PATIENT
  Sex: Female
  Weight: 48.58 kg

DRUGS (6)
  1. PRISTIQ [Suspect]
     Indication: DEPRESSION
     Route: 048
     Dates: start: 20090608
  2. PRISTIQ [Suspect]
     Indication: ANXIETY
  3. ATORVASTATIN CALCIUM [Concomitant]
  4. CLONOPIN [Concomitant]
  5. ATENOLOL [Concomitant]
  6. BENICAR [Concomitant]

REACTIONS (2)
  - DECREASED APPETITE [None]
  - NAUSEA [None]
